FAERS Safety Report 9815971 (Version 1)
Quarter: 2014Q1

REPORT INFORMATION
  Report Type: Spontaneous
  Country: US (occurrence: US)
  Receive Date: 20140114
  Receipt Date: 20140114
  Transmission Date: 20141002
  Serious: Yes (Death)
  Sender: FDA-Public Use
  Company Number: US-PFIZER INC-2014006527

PATIENT
  Age: 63 Year
  Sex: Female

DRUGS (10)
  1. GABAPENTIN [Suspect]
  2. HYDROXYZINE PAMOATE [Suspect]
  3. ACETAMINOPHEN W/CODEINE [Suspect]
  4. ACETAMINOPHEN [Suspect]
  5. TRAMADOL [Suspect]
  6. PROMETHAZINE [Suspect]
  7. BUTALBITAL, ACETAMINOPHEN + CAFFEINE [Suspect]
  8. BUPRENORPHINE [Suspect]
  9. CLONAZEPAM [Suspect]
  10. ORPHENADRINE [Suspect]

REACTIONS (1)
  - Death [Fatal]
